FAERS Safety Report 5341028-7 (Version None)
Quarter: 2007Q2

REPORT INFORMATION
  Report Type: 
  Country: None (occurrence: None)
  Receive Date: 20070530
  Receipt Date: 20070515
  Transmission Date: 20071010
  Serious: Yes (Hospitalization)
  Sender: FDA-Public Use
  Company Number: GP-07-05-0007

PATIENT
  Age: 63 Year
  Sex: Male

DRUGS (1)
  1. GABAPENTIN [Suspect]
     Indication: BACK PAIN
     Dosage: 4900 MG/DAY

REACTIONS (8)
  - AGITATION [None]
  - BODY TEMPERATURE INCREASED [None]
  - CONFUSIONAL STATE [None]
  - HALLUCINATION [None]
  - HYPERHIDROSIS [None]
  - MENTAL STATUS CHANGES [None]
  - TACHYCARDIA [None]
  - TREMOR [None]
